FAERS Safety Report 5465887-2 (Version None)
Quarter: 2007Q3

REPORT INFORMATION
  Report Type: 
  Country: None (occurrence: None)
  Receive Date: 20070924
  Receipt Date: 20070912
  Transmission Date: 20080115
  Serious: Yes (Life-Threatening, Hospitalization)
  Sender: FDA-Public Use
  Company Number: HQWYE310031JUL07

PATIENT
  Sex: Female

DRUGS (5)
  1. EFFEXOR XR [Suspect]
     Indication: DEPRESSION
     Route: 048
     Dates: start: 20060101, end: 20070301
  2. EFFEXOR XR [Suspect]
     Dates: start: 20070301, end: 20070301
  3. EFFEXOR XR [Suspect]
     Dates: start: 20070301
  4. WELLBUTRIN XL [Concomitant]
     Indication: DEPRESSION
     Route: 048
  5. VITAMINS NOS [Concomitant]
     Indication: PRENATAL CARE
     Dosage: UNKNOWN
     Route: 048

REACTIONS (4)
  - CAESAREAN SECTION [None]
  - DRUG EXPOSURE DURING PREGNANCY [None]
  - PREGNANCY [None]
  - PREGNANCY INDUCED HYPERTENSION [None]
